FAERS Safety Report 21806073 (Version 2)
Quarter: 2023Q1

REPORT INFORMATION
  Report Type: Report from Study
  Country: US (occurrence: US)
  Receive Date: 20230102
  Receipt Date: 20230213
  Transmission Date: 20230417
  Serious: Yes (Other)
  Sender: FDA-Public Use
  Company Number: US-002147023-NVSC2021US194744

PATIENT
  Age: 37 Year
  Sex: Female
  Weight: 76.4 kg

DRUGS (4)
  1. VIJOICE [Suspect]
     Active Substance: ALPELISIB
     Indication: PIK3CA related overgrowth spectrum
     Dosage: 50 MG, QD
     Route: 048
     Dates: start: 20210806, end: 20210901
  2. VIJOICE [Suspect]
     Active Substance: ALPELISIB
     Dosage: 50 MG, QOD
     Route: 048
     Dates: start: 20210901, end: 20210924
  3. PANTOPRAZOLE [Concomitant]
     Active Substance: PANTOPRAZOLE
     Indication: Product used for unknown indication
     Dosage: 20 MG, QD (DELAYED RELEASE)
     Route: 048
     Dates: start: 20210828
  4. FAMOTIDINE [Concomitant]
     Active Substance: FAMOTIDINE
     Indication: Product used for unknown indication
     Dosage: 20 MG, Q 3 DAYS
     Route: 048
     Dates: start: 20210905

REACTIONS (21)
  - Oral pain [Recovering/Resolving]
  - Decreased appetite [Recovering/Resolving]
  - Nausea [Recovering/Resolving]
  - Bone pain [Not Recovered/Not Resolved]
  - Facial pain [Not Recovered/Not Resolved]
  - Mouth haemorrhage [Not Recovered/Not Resolved]
  - Oedema [Not Recovered/Not Resolved]
  - Headache [Not Recovered/Not Resolved]
  - Electrolyte imbalance [Unknown]
  - Fatigue [Not Recovered/Not Resolved]
  - Vomiting [Recovering/Resolving]
  - Abdominal pain [Recovering/Resolving]
  - Diarrhoea [Recovered/Resolved]
  - Diarrhoea [Recovering/Resolving]
  - Dyspepsia [Unknown]
  - Abdominal distension [Unknown]
  - Migraine [Unknown]
  - Pain [Recovering/Resolving]
  - Dysgeusia [Unknown]
  - Swelling [Unknown]
  - Drug effect less than expected [Unknown]

NARRATIVE: CASE EVENT DATE: 20210811
